FAERS Safety Report 18286426 (Version 2)
Quarter: 2020Q3

REPORT INFORMATION
  Report Type: Spontaneous
  Country: DE (occurrence: DE)
  Receive Date: 20200920
  Receipt Date: 20200925
  Transmission Date: 20201103
  Serious: Yes (Death, Hospitalization, Other)
  Sender: FDA-Public Use
  Company Number: NVSC2019DE067905

PATIENT
  Age: 65 Year
  Sex: Female
  Weight: 67 kg

DRUGS (4)
  1. VARGATEF [Suspect]
     Active Substance: NINTEDANIB
     Indication: LUNG ADENOCARCINOMA
     Dosage: 400 MG, QD
     Route: 048
     Dates: start: 20190904
  2. DOCETAXEL. [Suspect]
     Active Substance: DOCETAXEL
     Dosage: 75 MG/M2, QD (FORMULATION: LIQUID; TOTAL DAILY DOSE: 75 MG / M? BODY SURFACE AREA (BSA))
     Route: 065
     Dates: start: 20190903
  3. DOCETAXEL. [Suspect]
     Active Substance: DOCETAXEL
     Indication: LUNG ADENOCARCINOMA
     Dosage: 1 UNK, QD (FORMULATION: LIQUID; TOTAL DAILY DOSE: 75 MG / M? BODY SURFACE AREA (BSA))
     Route: 042
     Dates: start: 20190903
  4. VARGATEF [Suspect]
     Active Substance: NINTEDANIB
     Dosage: 200 MG, Q12H (200 MG, 0.5 DAYS)
     Route: 048
     Dates: start: 20190904

REACTIONS (3)
  - Pneumonia [Not Recovered/Not Resolved]
  - Sepsis [Fatal]
  - Diarrhoea [Recovered/Resolved]

NARRATIVE: CASE EVENT DATE: 20190910
